FAERS Safety Report 7425151-9 (Version None)
Quarter: 2011Q2

REPORT INFORMATION
  Report Type: 
  Country: None (occurrence: None)
  Receive Date: 20110412
  Receipt Date: 20110328
  Transmission Date: 20111010
  Serious: Yes (Disabling)
  Sender: FDA-Public Use
  Company Number: 1000019937

PATIENT
  Age: 77 Year
  Sex: Male
  Weight: 60 kg

DRUGS (4)
  1. SPIRIVA (TIOTROPIUM BROMIDE) (CAPSULES) (TIOTROPIUM BROMIDE) [Concomitant]
  2. SYMNBICORT TURBUHALER (BUDESONIDE, FORMOTEROL FUMARATE) (BUDESONIDE, F [Concomitant]
  3. SALBUTAMOL (SALBUTAMOL) (AEROSOL FOR INHALATION) (SALBUTAMOL) [Concomitant]
  4. ROFLUMILAST (ROFLUMILAST) (TABLET) [Suspect]
     Indication: CHRONIC OBSTRUCTIVE PULMONARY DISEASE
     Dosage: 500 MCG (500 MCG, 1 IN 1 D), ORAL
     Route: 048
     Dates: start: 20110210, end: 20110217

REACTIONS (3)
  - DRUG INEFFECTIVE [None]
  - WEIGHT DECREASED [None]
  - DECREASED APPETITE [None]
